FAERS Safety Report 14095901 (Version 1)
Quarter: 2017Q4

REPORT INFORMATION
  Report Type: Spontaneous
  Country: JP (occurrence: JP)
  Receive Date: 20171017
  Receipt Date: 20171017
  Transmission Date: 20180321
  Serious: Yes (Other)
  Sender: FDA-Public Use
  Company Number: JP-ROCHE-2007885

PATIENT
  Sex: Female

DRUGS (9)
  1. PREDONINE [Concomitant]
     Active Substance: PREDNISOLONE
     Route: 064
     Dates: start: 20170509, end: 20170524
  2. DEXART [Concomitant]
     Active Substance: DEXAMETHASONE SODIUM PHOSPHATE
     Route: 064
     Dates: start: 20170524, end: 20170527
  3. RITUXAN [Suspect]
     Active Substance: RITUXIMAB
     Dosage: FORM STRENGTH: 10 MG/ML
     Route: 064
     Dates: start: 20170621, end: 20170621
  4. PREDONINE [Concomitant]
     Active Substance: PREDNISOLONE
     Route: 064
     Dates: start: 20170528, end: 20170604
  5. PREDONINE [Concomitant]
     Active Substance: PREDNISOLONE
     Route: 064
     Dates: start: 20170619, end: 20170628
  6. RITUXAN [Suspect]
     Active Substance: RITUXIMAB
     Indication: PRODUCT USED FOR UNKNOWN INDICATION
     Dosage: FORM STRENGTH: 10 MG/ML
     Route: 064
     Dates: start: 20170614, end: 20170614
  7. IVIG [Concomitant]
     Active Substance: HUMAN IMMUNOGLOBULIN G
     Route: 064
     Dates: start: 20170605, end: 20170608
  8. PREDONINE [Concomitant]
     Active Substance: PREDNISOLONE
     Route: 064
     Dates: start: 20170612, end: 20170618
  9. PREDONINE [Concomitant]
     Active Substance: PREDNISOLONE
     Route: 064
     Dates: start: 20170605, end: 20170611

REACTIONS (2)
  - Foetal exposure during pregnancy [Unknown]
  - Lymphocytopenia neonatal [Unknown]
